FAERS Safety Report 25237974 (Version 1)
Quarter: 2025Q2

REPORT INFORMATION
  Report Type: Report from Study
  Country: GB (occurrence: GB)
  Receive Date: 20250425
  Receipt Date: 20250425
  Transmission Date: 20250717
  Serious: Yes (Other)
  Sender: RADIUS PHARM
  Company Number: GB-THERAMEX-2025001079

PATIENT
  Age: 69 Year
  Sex: Female

DRUGS (1)
  1. ABALOPARATIDE [Suspect]
     Active Substance: ABALOPARATIDE
     Indication: Osteoporosis
     Dosage: 80 MICROGRAM/DOSE, QD
     Route: 058

REACTIONS (5)
  - Angina pectoris [Unknown]
  - Malaise [Unknown]
  - Palpitations [Unknown]
  - Hypertension [Unknown]
  - Blood calcium increased [Unknown]
